FAERS Safety Report 17524390 (Version 1)
Quarter: 2020Q1

REPORT INFORMATION
  Report Type: Spontaneous
  Country: US (occurrence: US)
  Receive Date: 20200311
  Receipt Date: 20200311
  Transmission Date: 20200409
  Serious: Yes (Other)
  Sender: FDA-Public Use
  Company Number: US-TEVA-2020-US-1196859

PATIENT
  Age: 65 Year
  Sex: Female

DRUGS (1)
  1. HYDROMORPHONE [Suspect]
     Active Substance: HYDROMORPHONE
     Dosage: 24 MILLIGRAM DAILY;
     Route: 065

REACTIONS (3)
  - Pneumonia aspiration [Recovering/Resolving]
  - Gastrooesophageal reflux disease [Recovering/Resolving]
  - Oesophageal obstruction [Recovering/Resolving]
